FAERS Safety Report 7916041-3 (Version None)
Quarter: 2011Q4

REPORT INFORMATION
  Report Type: 
  Country: None (occurrence: None)
  Receive Date: 20111115
  Receipt Date: 20111107
  Transmission Date: 20120403
  Serious: Yes (Hospitalization)
  Sender: FDA-Public Use
  Company Number: CH-BRISTOL-MYERS SQUIBB COMPANY-16229726

PATIENT
  Age: 69 Year
  Sex: Male

DRUGS (3)
  1. CISPLATIN [Suspect]
     Indication: OESOPHAGEAL CARCINOMA
     Dosage: PRIOR TO EVENT: 28MAR11.
     Route: 042
     Dates: start: 20110113
  2. DOCETAXEL [Suspect]
     Indication: OESOPHAGEAL CARCINOMA
     Dosage: DOSAGE: 13JAN11 150MG, 28FEB11 40MG PRIOR TO EVENT:28MAR11.
     Route: 042
     Dates: start: 20110113
  3. CETUXIMAB [Suspect]
     Indication: OESOPHAGEAL CARCINOMA
     Dosage: DOSAGE: 500MG 28FEB11, 1000MG 13JUL11. PRIOR TO EVENT: 21SEP11
     Route: 042
     Dates: start: 20110113

REACTIONS (1)
  - ENDOPHTHALMITIS [None]
